FAERS Safety Report 12215948 (Version 1)
Quarter: 2016Q1

REPORT INFORMATION
  Report Type: Spontaneous
  Country: CO (occurrence: CO)
  Receive Date: 20160328
  Receipt Date: 20160328
  Transmission Date: 20160526
  Serious: Yes (Other)
  Sender: FDA-Public Use
  Company Number: CO-ELI_LILLY_AND_COMPANY-CO201603009631

PATIENT
  Age: 66 Year
  Sex: Female

DRUGS (3)
  1. COLCHICINE. [Concomitant]
     Active Substance: COLCHICINE
     Dosage: UNK
  2. TERIPARATIDE [Suspect]
     Active Substance: TERIPARATIDE
     Indication: OSTEOPOROSIS
     Dosage: UNK
     Route: 065
  3. METHOTREXATE [Concomitant]
     Active Substance: METHOTREXATE
     Dosage: UNK

REACTIONS (2)
  - Cutaneous calcification [Recovered/Resolved]
  - Mobility decreased [Recovered/Resolved]
